FAERS Safety Report 8022986-9 (Version None)
Quarter: 2012Q1

REPORT INFORMATION
  Report Type: 
  Country: None (occurrence: None)
  Receive Date: 20120104
  Receipt Date: 20120103
  Transmission Date: 20120608
  Serious: Yes (Other)
  Sender: FDA-Public Use
  Company Number: US-ROXANE LABORATORIES, INC.-2012-RO-00001RO

PATIENT
  Age: 63 Year
  Sex: Male
  Weight: 90 kg

DRUGS (1)
  1. CYCLOPHOSPHAMIDE [Suspect]

REACTIONS (5)
  - SYNCOPE [None]
  - ASTHENIA [None]
  - DEHYDRATION [None]
  - SERRATIA SEPSIS [None]
  - HYPOTENSION [None]
